FAERS Safety Report 5943271-2 (Version None)
Quarter: 2008Q4

REPORT INFORMATION
  Report Type: 
  Country: None (occurrence: None)
  Receive Date: 20081105
  Receipt Date: 20081105
  Transmission Date: 20090506
  Serious: Yes (Other)
  Sender: FDA-Public Use
  Company Number: None

PATIENT
  Age: 52 Year
  Sex: Female
  Weight: 55.3388 kg

DRUGS (2)
  1. HYDROCODONE BITARTRATE + ACETAMINOPHEN [Suspect]
     Indication: ROTATOR CUFF REPAIR
     Dosage: 5-325 1-2 TABS 4-6 HOURS PO
     Route: 048
     Dates: start: 20081030, end: 20081031
  2. OXYCODONE AND ACETAMINOPHEN [Suspect]
     Indication: ROTATOR CUFF REPAIR
     Dosage: 5-325 1-2 TABS 4-6 HOURS PO
     Route: 048
     Dates: start: 20081101, end: 20081101

REACTIONS (3)
  - DYSPHAGIA [None]
  - PHARYNGEAL OEDEMA [None]
  - PRODUCT QUALITY ISSUE [None]
